FAERS Safety Report 4637421-8 (Version None)
Quarter: 2005Q2

REPORT INFORMATION
  Report Type: 
  Country: None (occurrence: None)
  Receive Date: 20050418
  Receipt Date: 20050407
  Transmission Date: 20051028
  Serious: Yes (Other)
  Sender: FDA-Public Use
  Company Number: PHEH2005US04063

PATIENT
  Age: 34 Year
  Sex: Male

DRUGS (4)
  1. ZOLEDRONATE [Suspect]
     Indication: OSTEOPOROSIS
     Dosage: UNK, Q6 MONTHS
  2. PREDNISONE [Concomitant]
  3. WARFARIN [Concomitant]
  4. TETRACYCLINE [Concomitant]

REACTIONS (1)
  - APLASIA PURE RED CELL [None]
